FAERS Safety Report 11438667 (Version 1)
Quarter: 2015Q3

REPORT INFORMATION
  Report Type: Spontaneous
  Country: US (occurrence: US)
  Receive Date: 20150901
  Receipt Date: 20150901
  Transmission Date: 20151125
  Serious: No
  Sender: FDA-Public Use
  Company Number: US-ROCHE-1142694

PATIENT
  Sex: Female

DRUGS (5)
  1. PEGASYS [Suspect]
     Active Substance: PEGINTERFERON ALFA-2A
     Route: 058
  2. PEGASYS [Suspect]
     Active Substance: PEGINTERFERON ALFA-2A
     Indication: CHRONIC HEPATITIS C
     Route: 058
     Dates: start: 20120727
  3. COPEGUS [Suspect]
     Active Substance: RIBAVIRIN
     Indication: CHRONIC HEPATITIS C
     Route: 065
     Dates: start: 20120727
  4. INCIVEK [Suspect]
     Active Substance: TELAPREVIR
     Indication: CHRONIC HEPATITIS C
     Route: 065
     Dates: start: 20120727
  5. COPEGUS [Suspect]
     Active Substance: RIBAVIRIN
     Route: 065

REACTIONS (16)
  - Eye irritation [Unknown]
  - Tongue ulceration [Unknown]
  - Ear pain [Unknown]
  - Fatigue [Unknown]
  - Pertussis [Unknown]
  - Nasal congestion [Unknown]
  - Visual impairment [Unknown]
  - Oropharyngeal pain [Unknown]
  - Epistaxis [Unknown]
  - Pneumonia [Unknown]
  - Oral discomfort [Unknown]
  - Cough [Unknown]
  - Dry eye [Unknown]
  - Viral infection [Unknown]
  - Stomatitis [Unknown]
  - Head discomfort [Unknown]
